FAERS Safety Report 9740637 (Version 1)
Quarter: 2013Q4

REPORT INFORMATION
  Report Type: Spontaneous
  Country: US (occurrence: US)
  Receive Date: 20131209
  Receipt Date: 20131209
  Transmission Date: 20140711
  Serious: No
  Sender: FDA-Public Use
  Company Number: US-BIOGENIDEC-2013BI098152

PATIENT
  Age: 47 Year
  Sex: Female

DRUGS (6)
  1. TECFIDERA [Suspect]
     Indication: MULTIPLE SCLEROSIS
     Route: 048
  2. TECFIDERA [Suspect]
     Indication: MULTIPLE SCLEROSIS
     Dates: start: 201307, end: 201308
  3. TECFIDERA [Suspect]
     Indication: MULTIPLE SCLEROSIS
     Route: 048
     Dates: end: 20130823
  4. IMODIUM [Concomitant]
  5. LOESTRIN [Concomitant]
  6. ORACEA [Concomitant]

REACTIONS (11)
  - Diarrhoea [Recovered/Resolved]
  - Abdominal discomfort [Unknown]
  - Aphagia [Recovered/Resolved]
  - Fluid intake reduced [Recovered/Resolved]
  - Feeling abnormal [Recovered/Resolved]
  - Middle insomnia [Recovered/Resolved]
  - Hyperaesthesia [Not Recovered/Not Resolved]
  - Nausea [Recovered/Resolved]
  - Vomiting [Recovered/Resolved]
  - Flushing [Recovered/Resolved]
  - Dyspepsia [Recovered/Resolved]
